FAERS Safety Report 4903398-0 (Version None)
Quarter: 2006Q1

REPORT INFORMATION
  Report Type: 
  Country: None (occurrence: None)
  Receive Date: 20060203
  Receipt Date: 20060125
  Transmission Date: 20060701
  Serious: Yes (Other)
  Sender: FDA-Public Use
  Company Number: GBWYE335826JAN06

PATIENT
  Age: 73 Year
  Sex: Female

DRUGS (2)
  1. MINOCIN [Suspect]
     Dosage: 100MG ORAL
     Route: 048
  2. IRBESARTAN [Concomitant]

REACTIONS (1)
  - GRANULOMA [None]
